FAERS Safety Report 20326015 (Version 2)
Quarter: 2022Q2

REPORT INFORMATION
  Report Type: Other
  Country: CN (occurrence: None)
  Receive Date: 20220112
  Receipt Date: 20220405
  Transmission Date: 20220721
  Serious: Yes (Death, Hospitalization, Other)
  Sender: FDA-Public Use
  Company Number: CN-ROCHE-2061028

PATIENT
  Age: 60 Year
  Sex: Female
  Weight: 69 kg

DRUGS (3)
  1. AVASTIN [Suspect]
     Active Substance: BEVACIZUMAB
     Indication: Non-small cell lung cancer
     Route: 041
     Dates: start: 20170913, end: 20180126
  2. AVASTIN [Suspect]
     Active Substance: BEVACIZUMAB
     Route: 041
     Dates: end: 20190416
  3. AVASTIN [Suspect]
     Active Substance: BEVACIZUMAB
     Route: 041
     Dates: start: 20190710

REACTIONS (17)
  - Varicose vein [Unknown]
  - Asthenia [Unknown]
  - Hypertension [Unknown]
  - Feeding disorder [Unknown]
  - Decreased appetite [Unknown]
  - Labile blood pressure [Unknown]
  - Discomfort [Unknown]
  - Asthenia [Unknown]
  - Weight decreased [Unknown]
  - Fatigue [Unknown]
  - Hypertension [Unknown]
  - Nasopharyngitis [Unknown]
  - Pyrexia [Unknown]
  - Cardiac failure [Unknown]
  - Nasopharyngitis [Unknown]
  - Asthenia [Unknown]
  - Death [Fatal]

NARRATIVE: CASE EVENT DATE: 20180123
